FAERS Safety Report 9266113 (Version 1)
Quarter: 2013Q2

REPORT INFORMATION
  Report Type: Spontaneous
  Country: US (occurrence: US)
  Receive Date: 20130502
  Receipt Date: 20130502
  Transmission Date: 20140414
  Serious: Yes (Hospitalization, Other)
  Sender: FDA-Public Use
  Company Number: US-OTSUKA-US-2013-10757

PATIENT
  Age: 51 Year
  Sex: Female

DRUGS (4)
  1. SAMSCA [Suspect]
     Dosage: 15 MG MILLIGRAM(S), QD
     Dates: start: 20130407, end: 20130408
  2. BUSPAR [Concomitant]
     Indication: PRODUCT USED FOR UNKNOWN INDICATION
  3. NEO-SYNEPHRINE HYDROCHLORIDE [Concomitant]
     Indication: PRODUCT USED FOR UNKNOWN INDICATION
     Dosage: UNK
     Dates: start: 20130416
  4. DEMECLOCYCLINE HCL [Concomitant]
     Dosage: UNK
     Dates: start: 20130416

REACTIONS (8)
  - Abdominal pain [Unknown]
  - Headache [Unknown]
  - Lung disorder [Unknown]
  - Nausea [Unknown]
  - Hyponatraemia [Unknown]
  - Pulmonary mass [Unknown]
  - Inappropriate antidiuretic hormone secretion [Unknown]
  - Thoracic operation [Unknown]
